FAERS Safety Report 5910667-4 (Version None)
Quarter: 2008Q4

REPORT INFORMATION
  Report Type: 
  Country: None (occurrence: None)
  Receive Date: 20081007
  Receipt Date: 20080929
  Transmission Date: 20090506
  Serious: Yes (Disabling)
  Sender: FDA-Public Use
  Company Number: NO-ASTRAZENECA-1995AD00327

PATIENT
  Age: 74 Year
  Sex: Male

DRUGS (3)
  1. PULMICORT [Suspect]
     Indication: COUGH
     Route: 055
     Dates: start: 19950101, end: 19950612
  2. PULMICORT [Suspect]
     Route: 055
     Dates: start: 19950612, end: 19950818
  3. BRICANYL [Concomitant]

REACTIONS (1)
  - PULMONARY TUBERCULOSIS [None]
